FAERS Safety Report 5716726-3 (Version None)
Quarter: 2008Q2

REPORT INFORMATION
  Report Type: 
  Country: None (occurrence: None)
  Receive Date: 20080424
  Receipt Date: 20070514
  Transmission Date: 20081010
  Serious: No
  Sender: FDA-Public Use
  Company Number: US-BAYER-200711512BWH

PATIENT
  Age: 38 Year
  Sex: Male

DRUGS (5)
  1. LEVITRA [Suspect]
     Indication: DRUG USE FOR UNKNOWN INDICATION
     Route: 048
     Dates: start: 20070101
  2. LEVITRA [Suspect]
     Route: 048
     Dates: start: 20070101
  3. LEVITRA [Suspect]
     Route: 048
     Dates: start: 20070101
  4. LEVITRA [Suspect]
     Route: 048
     Dates: start: 20070501
  5. SINGULAIR [Concomitant]
     Indication: ASTHMA

REACTIONS (1)
  - PENIS DISORDER [None]
